FAERS Safety Report 8369453-0 (Version None)
Quarter: 2012Q2

REPORT INFORMATION
  Report Type: 
  Country: None (occurrence: None)
  Receive Date: 20120518
  Receipt Date: 20120507
  Transmission Date: 20120825
  Serious: Yes (Hospitalization, Other)
  Sender: FDA-Public Use
  Company Number: ES-JNJFOC-20120508130

PATIENT
  Sex: Female
  Weight: 45 kg

DRUGS (14)
  1. NSAID [Concomitant]
     Route: 065
  2. FOLIC ACID [Concomitant]
     Route: 065
  3. ACETAMINOPHEN [Concomitant]
     Route: 065
  4. ANGIOTENSIN II ANTAGONISTS [Concomitant]
     Route: 065
  5. SELECTIVE SEROTONIN REUPTAKE INHIBITOR [Concomitant]
     Route: 065
  6. ORAL ANTIDIABETICS [Concomitant]
     Route: 048
  7. PROTON PUMP INHIBITOR [Concomitant]
     Route: 065
  8. ACE INHIBITORS [Concomitant]
     Route: 065
  9. STATICIN [Concomitant]
     Route: 065
  10. STELARA [Suspect]
     Indication: PSORIASIS
     Route: 058
     Dates: start: 20120401
  11. ANTIDEPRESSANT NOS [Concomitant]
     Route: 065
  12. ANTICOAGULANTS NOS [Concomitant]
     Route: 065
  13. BENZODIAZEPINE NOS [Concomitant]
     Route: 065
  14. ISONIAZID [Concomitant]
     Route: 065

REACTIONS (1)
  - ESCHERICHIA SEPSIS [None]
